FAERS Safety Report 5409615-5 (Version None)
Quarter: 2007Q3

REPORT INFORMATION
  Report Type: 
  Country: None (occurrence: None)
  Receive Date: 20070807
  Receipt Date: 20070807
  Transmission Date: 20080115
  Serious: Yes (Other)
  Sender: FDA-Public Use
  Company Number: None

PATIENT
  Sex: Female
  Weight: 53.5244 kg

DRUGS (2)
  1. MONISTAT [Suspect]
     Indication: FUNGAL INFECTION
     Dosage: 1200 MG. MICONAZOLE NITRATE ONE TIME DOSE VAG
     Route: 067
     Dates: start: 20070803, end: 20070803
  2. MONISTAT [Suspect]
     Dosage: 2% MICONAZOLE NITRATE ONCE TOP
     Route: 061

REACTIONS (5)
  - PHARMACEUTICAL PRODUCT COMPLAINT [None]
  - VAGINAL PAIN [None]
  - VAGINAL SWELLING [None]
  - VULVOVAGINAL BURNING SENSATION [None]
  - VULVOVAGINAL PRURITUS [None]
